FAERS Safety Report 18305595 (Version 2)
Quarter: 2021Q1

REPORT INFORMATION
  Report Type: Spontaneous
  Country: US (occurrence: US)
  Receive Date: 20200923
  Receipt Date: 20210216
  Transmission Date: 20210419
  Serious: Yes (Other)
  Sender: FDA-Public Use
  Company Number: US-TEVA-2020-US-1830092

PATIENT
  Age: 57 Year
  Sex: Female

DRUGS (1)
  1. CLONAZEPAM TEVA [Suspect]
     Active Substance: CLONAZEPAM
     Indication: ANXIETY
     Dosage: USING FOR FIVE YEARS
     Route: 048

REACTIONS (3)
  - Suicidal ideation [Unknown]
  - Drug tolerance [Unknown]
  - Suicide attempt [Unknown]

NARRATIVE: CASE EVENT DATE: 2018
